FAERS Safety Report 15862782 (Version 1)
Quarter: 2019Q1

REPORT INFORMATION
  Report Type: Spontaneous
  Country: ES (occurrence: ES)
  Receive Date: 20190124
  Receipt Date: 20190124
  Transmission Date: 20190417
  Serious: Yes (Hospitalization)
  Sender: FDA-Public Use
  Company Number: ES-JNJFOC-20190127879

PATIENT
  Age: 74 Year
  Sex: Female

DRUGS (6)
  1. IBUPROFENO (1769A) [Suspect]
     Active Substance: IBUPROFEN
     Route: 048
  2. METFORMIN HYDROCHLORIDE. [Concomitant]
     Active Substance: METFORMIN HYDROCHLORIDE
     Indication: TYPE 2 DIABETES MELLITUS
     Dosage: 850MG
     Route: 048
  3. CO-DIOVAN [Interacting]
     Active Substance: HYDROCHLOROTHIAZIDE\VALSARTAN
     Indication: HYPERTENSION
     Dosage: LA PACIENTE DESCONOCE LA DOSIS
     Route: 048
     Dates: start: 2016
  4. ESPIRONOLACTONA ALTER [Interacting]
     Active Substance: SPIRONOLACTONE
     Indication: CARDIAC FAILURE
     Route: 048
     Dates: start: 2016, end: 201707
  5. IBUPROFENO (1769A) [Suspect]
     Active Substance: IBUPROFEN
     Indication: CATARRH
     Route: 048
     Dates: start: 20160120, end: 20170705
  6. FUROSEMIDE. [Interacting]
     Active Substance: FUROSEMIDE
     Indication: CARDIAC FAILURE
     Route: 048
     Dates: start: 2016, end: 201707

REACTIONS (3)
  - Condition aggravated [Recovered/Resolved]
  - Hyperkalaemia [Recovered/Resolved]
  - Acute kidney injury [Recovered/Resolved]

NARRATIVE: CASE EVENT DATE: 20170705
